FAERS Safety Report 4692068-2 (Version None)
Quarter: 2005Q2

REPORT INFORMATION
  Report Type: 
  Country: None (occurrence: None)
  Receive Date: 20050608
  Receipt Date: 20040609
  Transmission Date: 20051028
  Serious: Yes (Other)
  Sender: FDA-Public Use
  Company Number: 370646

PATIENT

DRUGS (2)
  1. ACCUTANE [Suspect]
     Dosage: ORAL
     Route: 048
     Dates: start: 20030609, end: 20030615
  2. ISOTRETINOIN ROCHE UNSPEC. (ISOTRETINOIN) [Suspect]
     Dosage: ORAL
     Route: 048
     Dates: start: 20030715, end: 20031118

REACTIONS (2)
  - ABORTION INDUCED [None]
  - DRUG EXPOSURE DURING PREGNANCY [None]
